FAERS Safety Report 10196614 (Version 1)
Quarter: 2014Q2

REPORT INFORMATION
  Report Type: Spontaneous
  Country: GB (occurrence: None)
  Receive Date: 20140522
  Receipt Date: 20140522
  Transmission Date: 20141212
  Serious: Yes (Other)
  Sender: FDA-Public Use
  Company Number: AUR-APL-2014-05927

PATIENT
  Age: 60 Year
  Sex: Female
  Weight: 82.55 kg

DRUGS (4)
  1. CLOPIDOGREL (CLOPIDOGREL) [Suspect]
     Indication: TRANSIENT ISCHAEMIC ATTACK
     Route: 048
     Dates: start: 20131101, end: 20140507
  2. LISINOPRIL (LISINOPRIL) [Concomitant]
  3. SIMVASTATIN (SIMVASTATIN) [Concomitant]
  4. THYROXINE (LEVOTHYROXINE SODIUM) [Concomitant]

REACTIONS (3)
  - Mouth ulceration [None]
  - Conjunctival haemorrhage [None]
  - Stomatitis [None]
